FAERS Safety Report 4359656-4 (Version None)
Quarter: 2004Q2

REPORT INFORMATION
  Report Type: 
  Country: None (occurrence: None)
  Receive Date: 20040512
  Receipt Date: 20040430
  Transmission Date: 20050107
  Serious: Yes (Disabling)
  Sender: FDA-Public Use
  Company Number: 2004UW08966

PATIENT
  Sex: Female
  Weight: 79.3795 kg

DRUGS (13)
  1. SEROQUEL [Suspect]
     Indication: CEREBROVASCULAR ACCIDENT
     Dosage: 25 MG PO
     Route: 048
     Dates: start: 20040401
  2. SEROQUEL [Suspect]
     Indication: CEREBROVASCULAR ACCIDENT
     Dosage: 100 MG PO
     Route: 048
     Dates: start: 20040401
  3. COZAAR [Concomitant]
  4. LASIX [Concomitant]
  5. POTASSIUM CHLORIDE [Concomitant]
  6. COUMADIN [Concomitant]
  7. PRAVACHOL [Concomitant]
  8. PREVACID [Concomitant]
  9. ALLEGRA [Concomitant]
  10. MEXILETINE HCL [Concomitant]
  11. TOPROL-XL [Concomitant]
  12. LOTENSIN [Concomitant]
  13. DARVOCET-N 100 [Concomitant]

REACTIONS (4)
  - ABASIA [None]
  - DYSKINESIA [None]
  - MONOPLEGIA [None]
  - TREMOR [None]
